FAERS Safety Report 17913345 (Version 1)
Quarter: 2020Q2

REPORT INFORMATION
  Report Type: Spontaneous
  Country: US (occurrence: US)
  Receive Date: 20200618
  Receipt Date: 20200618
  Transmission Date: 20200714
  Serious: No
  Sender: FDA-Public Use
  Company Number: US-THERAPEUTICSMD-2020TMD01354

PATIENT
  Sex: Female
  Weight: 67.12 kg

DRUGS (3)
  1. IMVEXXY [Suspect]
     Active Substance: ESTRADIOL
     Dosage: 4 ?G, 1X/DAY IN THE MORNING
     Route: 067
     Dates: start: 202002, end: 2020
  2. IMVEXXY [Suspect]
     Active Substance: ESTRADIOL
     Indication: ATROPHIC VULVOVAGINITIS
     Dosage: 4 ?G, 2X/WEEK IN THE MORNING
     Route: 067
     Dates: start: 2020, end: 20200314
  3. PROBIOTIC [Concomitant]
     Active Substance: PROBIOTICS NOS

REACTIONS (13)
  - Nausea [Recovered/Resolved]
  - Beta haemolytic streptococcal infection [Recovered/Resolved]
  - Throat irritation [Recovered/Resolved]
  - Headache [Recovered/Resolved]
  - Drug withdrawal syndrome [Recovered/Resolved]
  - Vulvovaginal burning sensation [Recovered/Resolved]
  - Blood glucose decreased [Recovered/Resolved]
  - Vulvovaginal discomfort [Recovered/Resolved]
  - Malaise [Recovered/Resolved]
  - Sleep disorder [Recovered/Resolved]
  - Hypersensitivity [Recovered/Resolved]
  - Dizziness [Recovered/Resolved]
  - Nervousness [Recovered/Resolved]

NARRATIVE: CASE EVENT DATE: 2020
